FAERS Safety Report 21425856 (Version 8)
Quarter: 2022Q4

REPORT INFORMATION
  Report Type: Report from Study
  Country: DE (occurrence: DE)
  Receive Date: 20221008
  Receipt Date: 20221216
  Transmission Date: 20230112
  Serious: Yes (Hospitalization)
  Sender: FDA-Public Use
  Company Number: DE-PFIZER INC-PV202200068864

PATIENT
  Age: 49 Year
  Sex: Female
  Weight: 74 kg

DRUGS (13)
  1. LEUPROLIDE ACETATE [Suspect]
     Active Substance: LEUPROLIDE ACETATE
     Indication: Breast cancer
     Dosage: 11.25 MILLIGRAM, Q3 MONTHS
     Route: 065
     Dates: start: 20220824
  2. PALBOCICLIB [Suspect]
     Active Substance: PALBOCICLIB
     Indication: Breast cancer
     Dosage: TIME INTERVAL: CYCLICAL: 125 MILLIGRAM
     Route: 048
     Dates: start: 20220824
  3. HYDROMORPHONE RATIOPHARM [Concomitant]
     Indication: Metastases to bone
     Dosage: UNK
     Route: 048
     Dates: start: 20220820
  4. HYDROMORPHONE RATIOPHARM [Concomitant]
     Indication: Metastases to bone
     Dosage: UNK
     Route: 048
     Dates: start: 20220822
  5. HYDROMORPHONE RATIOPHARM [Concomitant]
     Indication: Metastases to bone
     Dosage: UNK
     Route: 048
     Dates: start: 20220822
  6. HYDROMORPHONE RATIOPHARM [Concomitant]
     Indication: Metastases to bone
     Dosage: UNK
     Route: 048
     Dates: start: 20220820, end: 202208
  7. HYDROMORPHONE RATIOPHARM [Concomitant]
     Indication: Metastases to bone
     Dosage: UNK
     Route: 048
     Dates: start: 20220822
  8. LETROZOLE [Suspect]
     Active Substance: LETROZOLE
     Indication: Breast cancer
     Dosage: 2.5 MILLIGRAM, QD
     Route: 048
     Dates: start: 20220824
  9. IBANDRONATE SODIUM [Concomitant]
     Active Substance: IBANDRONATE SODIUM
     Indication: Prophylaxis
     Dosage: UNK
     Route: 042
     Dates: start: 20220824
  10. IBANDRONATE SODIUM [Concomitant]
     Active Substance: IBANDRONATE SODIUM
     Indication: Prophylaxis
     Dosage: UNK
     Route: 042
     Dates: start: 20220824
  11. IBUPROFEN [Concomitant]
     Active Substance: IBUPROFEN
     Indication: Metastases to bone
     Dosage: UNK
     Route: 048
  12. IBUPROFEN [Concomitant]
     Active Substance: IBUPROFEN
     Indication: Metastases to bone
     Dosage: UNK
     Route: 048
  13. DEXAMETHASONE [Concomitant]
     Active Substance: DEXAMETHASONE
     Indication: Prophylaxis
     Dosage: UNK
     Route: 048
     Dates: start: 20220831

REACTIONS (1)
  - Nausea [Recovered/Resolved]

NARRATIVE: CASE EVENT DATE: 20220911
